FAERS Safety Report 8413204-8 (Version None)
Quarter: 2012Q2

REPORT INFORMATION
  Report Type: 
  Country: None (occurrence: None)
  Receive Date: 20120605
  Receipt Date: 20120531
  Transmission Date: 20120825
  Serious: Yes (Life-Threatening)
  Sender: FDA-Public Use
  Company Number: FR-SANOFI-AVENTIS-2012SA038590

PATIENT
  Age: 57 Year
  Sex: Female

DRUGS (5)
  1. EMEND [Concomitant]
     Indication: PREMEDICATION
     Dates: start: 20110808, end: 20110808
  2. ONDANSETRON [Concomitant]
     Indication: PREMEDICATION
     Dates: start: 20110808, end: 20110808
  3. PREDNISOLONE [Concomitant]
     Indication: PREMEDICATION
     Dates: start: 20110808, end: 20110808
  4. TAXOTERE [Suspect]
     Indication: BREAST CANCER
     Route: 042
     Dates: start: 20110808, end: 20110808
  5. PLITICAN [Concomitant]
     Indication: PREMEDICATION
     Dates: start: 20110808, end: 20110808

REACTIONS (6)
  - LOSS OF CONSCIOUSNESS [None]
  - CYANOSIS [None]
  - URINARY INCONTINENCE [None]
  - MALAISE [None]
  - GENERALISED ERYTHEMA [None]
  - VOMITING [None]
